FAERS Safety Report 18093612 (Version 2)
Quarter: 2020Q3

REPORT INFORMATION
  Report Type: Spontaneous
  Country: GB (occurrence: GB)
  Receive Date: 20200730
  Receipt Date: 20200903
  Transmission Date: 20201103
  Serious: Yes (Hospitalization, Other)
  Sender: FDA-Public Use
  Company Number: GB-009507513-2007GBR010825

PATIENT
  Age: 79 Year
  Sex: Male

DRUGS (1)
  1. BCG LIVE [Suspect]
     Active Substance: BACILLUS CALMETTE-GUERIN SUBSTRAIN TICE LIVE ANTIGEN
     Indication: BLADDER CANCER
     Dosage: 15 INSTILLATIONS
     Dates: start: 201801, end: 2018

REACTIONS (2)
  - Delirium [Recovered/Resolved]
  - Disseminated Bacillus Calmette-Guerin infection [Recovering/Resolving]

NARRATIVE: CASE EVENT DATE: 2018
